FAERS Safety Report 6395335-X (Version None)
Quarter: 2009Q4

REPORT INFORMATION
  Report Type: 
  Country: None (occurrence: None)
  Receive Date: 20091009
  Receipt Date: 20091005
  Transmission Date: 20100525
  Serious: Yes (Hospitalization, Disabling)
  Sender: FDA-Public Use
  Company Number: B0596885A

PATIENT
  Sex: Male

DRUGS (6)
  1. ZEFIX [Suspect]
     Indication: HEPATIC CIRRHOSIS
     Dosage: 100MG PER DAY
     Route: 048
     Dates: start: 20010823
  2. HEPSERA [Suspect]
     Indication: HEPATIC CIRRHOSIS
     Dosage: 10MG PER DAY
     Route: 048
     Dates: start: 20041227
  3. PROGRAF [Suspect]
     Indication: IMMUNOSUPPRESSION
     Dosage: .5MG TWICE PER DAY
     Route: 048
     Dates: start: 20020716
  4. ADALAT CC [Concomitant]
     Dosage: 20MG PER DAY
     Route: 048
     Dates: start: 20020819
  5. OMEPRAL [Concomitant]
     Indication: ULCER
     Dosage: 10MG PER DAY
     Route: 048
     Dates: start: 20020805
  6. URSO 250 [Concomitant]
     Dosage: 100MG THREE TIMES PER DAY
     Route: 048
     Dates: start: 19980901

REACTIONS (1)
  - FANCONI SYNDROME [None]
